FAERS Safety Report 5963812-9 (Version None)
Quarter: 2008Q4

REPORT INFORMATION
  Report Type: 
  Country: None (occurrence: None)
  Receive Date: 20081124
  Receipt Date: 20081113
  Transmission Date: 20090506
  Serious: Yes (Hospitalization)
  Sender: FDA-Public Use
  Company Number: JP-BRISTOL-MYERS SQUIBB COMPANY-14395768

PATIENT
  Age: 40 Year
  Sex: Female

DRUGS (17)
  1. ERBITUX [Suspect]
     Indication: COLON CANCER
     Dosage: FIRST INFUSION: 10-OCT-2008 (250MG/M2 WEEKLY) SECOND INFUSION: 22-OCT-2008
     Route: 041
     Dates: start: 20081010, end: 20081022
  2. AMOXAPINE [Suspect]
     Dosage: FORMULATION - CAPSULE
     Route: 048
     Dates: start: 20081006, end: 20081027
  3. ADONA [Suspect]
     Dosage: FORMULATION: TABLET
     Route: 048
     Dates: start: 20081020, end: 20081027
  4. TRANSAMIN [Suspect]
     Dosage: FORMULATION - CAPSULE
     Route: 048
     Dates: start: 20081020, end: 20081027
  5. BLOOD HUMAN [Suspect]
     Dosage: 4 DOSAGE FORM=4 UNITS (2 UNITS ON 20OCT AND 2 UNITS ON 21OCT08)
     Route: 042
     Dates: start: 20081020, end: 20081021
  6. CHLORPHENIRAMINE MALEATE [Concomitant]
  7. MYSLEE [Concomitant]
     Dosage: FORMULATION: TABLET
     Route: 048
     Dates: start: 20081021, end: 20081027
  8. ACTOS [Concomitant]
     Dosage: FORMULATION: TABLET
     Route: 048
     Dates: start: 20081016, end: 20081026
  9. ALDACTONE [Concomitant]
     Dosage: FORMULATION: TABLET
     Route: 048
     Dates: start: 20081014, end: 20081027
  10. FAMOTIDINE [Concomitant]
     Dosage: FORMULATION: TABLET
     Route: 048
     Dates: start: 20081014, end: 20081027
  11. GLUFAST [Concomitant]
     Dosage: FORMULATION: TABLET
     Route: 048
     Dates: start: 20081014, end: 20081027
  12. NAIXAN [Concomitant]
     Dosage: FORMULATION: TABLET
     Route: 048
     Dates: start: 20081014, end: 20081030
  13. NOVAMIN [Concomitant]
     Dosage: FORMULATION: TABLET
     Route: 048
     Dates: start: 20081020, end: 20081027
  14. HYPEN [Concomitant]
     Dosage: FORMULATION: TABLET
     Route: 048
     Dates: start: 20081014, end: 20081017
  15. POLARAMINE [Concomitant]
     Dosage: FORMULATION: TABLET
     Route: 048
     Dates: start: 20081020, end: 20081027
  16. LASIX [Concomitant]
     Route: 048
     Dates: start: 20081014, end: 20081027
  17. MAGNESIUM OXIDE [Concomitant]
     Route: 048
     Dates: start: 20081014

REACTIONS (2)
  - HYPERBILIRUBINAEMIA [None]
  - PYREXIA [None]
